FAERS Safety Report 15532343 (Version 1)
Quarter: 2018Q4

REPORT INFORMATION
  Report Type: Report from Study
  Country: CO (occurrence: CO)
  Receive Date: 20181019
  Receipt Date: 20181019
  Transmission Date: 20190205
  Serious: Yes (Hospitalization)
  Sender: FDA-Public Use
  Company Number: PHHY2018CO130446

PATIENT
  Sex: Male
  Weight: 76 kg

DRUGS (1)
  1. ENTRESTO [Suspect]
     Active Substance: SACUBITRIL\VALSARTAN
     Indication: CARDIAC FAILURE
     Dosage: 50 MG, QD (SACUBITRIL 24MG, VALSARTAN 26MG)
     Route: 048
     Dates: end: 20181006

REACTIONS (3)
  - Product prescribing error [Unknown]
  - Renal disorder [Unknown]
  - Prescribed underdose [Unknown]
